FAERS Safety Report 15653564 (Version 1)
Quarter: 2018Q4

REPORT INFORMATION
  Report Type: Spontaneous
  Country: US (occurrence: US)
  Receive Date: 20181124
  Receipt Date: 20181124
  Transmission Date: 20190205
  Serious: Yes (Other)
  Sender: FDA-Public Use
  Company Number: US-ACCORD-093388

PATIENT
  Age: 66 Year
  Sex: Female

DRUGS (2)
  1. TEMOZOLOMIDE. [Suspect]
     Active Substance: TEMOZOLOMIDE
     Indication: GLIOBLASTOMA
  2. BELINOSTAT [Suspect]
     Active Substance: BELINOSTAT
     Indication: GLIOBLASTOMA

REACTIONS (2)
  - Urticaria [Unknown]
  - Swelling face [Unknown]
